FAERS Safety Report 6923765-3 (Version None)
Quarter: 2010Q3

REPORT INFORMATION
  Report Type: 
  Country: None (occurrence: None)
  Receive Date: 20100813
  Receipt Date: 20100805
  Transmission Date: 20110219
  Serious: Yes (Death)
  Sender: FDA-Public Use
  Company Number: US-PURDUE-USA-2010-0045506

PATIENT
  Age: 42 Year
  Sex: Female

DRUGS (3)
  1. OXYCONTIN [Suspect]
     Indication: PRODUCT USED FOR UNKNOWN INDICATION
     Dosage: 40 MG, UNK
  2. NUCYNTA [Suspect]
     Indication: PRODUCT USED FOR UNKNOWN INDICATION
  3. SLEEPING PILLS [Concomitant]

REACTIONS (2)
  - DEATH [None]
  - DEPRESSED MOOD [None]
